FAERS Safety Report 24664918 (Version 1)
Quarter: 2024Q4

REPORT INFORMATION
  Report Type: Spontaneous
  Country: US (occurrence: None)
  Receive Date: 20241125
  Receipt Date: 20241125
  Transmission Date: 20250115
  Serious: No
  Sender: Public
  Company Number: None

PATIENT
  Age: 72 Year
  Sex: Male
  Weight: 76.5 kg

DRUGS (4)
  1. XIIDRA [Suspect]
     Active Substance: LIFITEGRAST
     Indication: Dry eye
     Dosage: FREQUENCY : TWICE A DAY;?
     Dates: start: 20241122, end: 20241125
  2. LISINOPRIL [Concomitant]
     Active Substance: LISINOPRIL
  3. chllthalidone [Concomitant]
  4. ATORVASTATIN [Concomitant]
     Active Substance: ATORVASTATIN

REACTIONS (3)
  - Headache [None]
  - Eye irritation [None]
  - Sinus disorder [None]

NARRATIVE: CASE EVENT DATE: 20241124
